FAERS Safety Report 10359736 (Version 1)
Quarter: 2014Q3

REPORT INFORMATION
  Report Type: Spontaneous
  Country: US (occurrence: None)
  Receive Date: 20140801
  Receipt Date: 20140801
  Transmission Date: 20150326
  Serious: No
  Sender: FDA-Public Use
  Company Number: None

PATIENT
  Age: 57 Year
  Sex: Female

DRUGS (1)
  1. SUMATRIPTAN [Suspect]
     Active Substance: SUMATRIPTAN
     Indication: MIGRAINE
     Dosage: 1 INJECTION AS NEEDED --
     Dates: start: 20140723, end: 20140730

REACTIONS (2)
  - Product quality issue [None]
  - Device failure [None]

NARRATIVE: CASE EVENT DATE: 20140730
